FAERS Safety Report 7700399-4 (Version None)
Quarter: 2011Q3

REPORT INFORMATION
  Report Type: 
  Country: None (occurrence: None)
  Receive Date: 20110822
  Receipt Date: 20110817
  Transmission Date: 20111222
  Serious: Yes (Hospitalization, Other)
  Sender: FDA-Public Use
  Company Number: DE-AMGEN-DEUSP2011036512

PATIENT
  Age: 18 Year
  Sex: Female
  Weight: 87 kg

DRUGS (3)
  1. NPLATE [Suspect]
     Indication: THROMBOCYTOPENIA
     Dosage: 1 A?G/KG, ONE TIME DOSE
     Route: 058
     Dates: start: 20110713, end: 20110713
  2. PREDNISOLONE [Concomitant]
     Indication: THROMBOCYTOPENIA
     Dosage: 100 MG, QD
     Route: 048
     Dates: start: 20110703, end: 20110713
  3. NPLATE [Suspect]
     Indication: IDIOPATHIC THROMBOCYTOPENIC PURPURA

REACTIONS (10)
  - KETOACIDOSIS [None]
  - ABDOMINAL DISCOMFORT [None]
  - ILEUS PARALYTIC [None]
  - THROMBOCYTOPENIA [None]
  - PORTAL VEIN THROMBOSIS [None]
  - PLATELET COUNT DECREASED [None]
  - HYPERCOAGULATION [None]
  - PELVIC VENOUS THROMBOSIS [None]
  - GASTROINTESTINAL HAEMORRHAGE [None]
  - VENA CAVA THROMBOSIS [None]
